FAERS Safety Report 18694325 (Version 2)
Quarter: 2021Q1

REPORT INFORMATION
  Report Type: Spontaneous
  Country: TH (occurrence: TH)
  Receive Date: 20210104
  Receipt Date: 20210114
  Transmission Date: 20210419
  Serious: Yes (Other)
  Sender: FDA-Public Use
  Company Number: TH-ROCHE-2743295

PATIENT
  Age: 56 Year
  Sex: Male

DRUGS (6)
  1. LUCENTIS [Suspect]
     Active Substance: RANIBIZUMAB
     Dosage: UNK (RBZ X5 Q4/Q6)
     Route: 065
     Dates: start: 201705, end: 201712
  2. LUCENTIS [Suspect]
     Active Substance: RANIBIZUMAB
     Dosage: UNK (RBZ X9 Q4/Q6)
     Route: 065
     Dates: start: 201801, end: 201812
  3. LUCENTIS [Suspect]
     Active Substance: RANIBIZUMAB
     Dosage: UNK (RBZ X9 Q4/Q6)
     Route: 065
     Dates: start: 202001, end: 202011
  4. LUCENTIS [Suspect]
     Active Substance: RANIBIZUMAB
     Indication: NEOVASCULAR AGE-RELATED MACULAR DEGENERATION
     Dosage: UNK (BVZ)
     Route: 065
     Dates: start: 201612
  5. LUCENTIS [Suspect]
     Active Substance: RANIBIZUMAB
     Indication: SUBRETINAL FLUID
     Dosage: UNK (AFL X4 Q4)
     Route: 065
     Dates: start: 201701, end: 201704
  6. LUCENTIS [Suspect]
     Active Substance: RANIBIZUMAB
     Dosage: UNK (RBZ X10 Q4/Q6)
     Route: 065
     Dates: start: 201901, end: 201912

REACTIONS (2)
  - Subretinal fluid [Unknown]
  - Choroidal neovascularisation [Unknown]
